FAERS Safety Report 7877800-9 (Version None)
Quarter: 2011Q4

REPORT INFORMATION
  Report Type: 
  Country: None (occurrence: None)
  Receive Date: 20111031
  Receipt Date: 20111031
  Transmission Date: 20120403
  Serious: Yes (Death, Life-Threatening)
  Sender: FDA-Public Use
  Company Number: None

PATIENT
  Age: 82 Year
  Sex: Female
  Weight: 68.038 kg

DRUGS (2)
  1. QUININE SULFATE [Suspect]
     Indication: RESTLESS LEGS SYNDROME
     Dosage: UNSURE
     Route: 030
     Dates: start: 20110101, end: 20111002
  2. QUININE SULFATE [Concomitant]
     Dosage: UNSURE
     Route: 048

REACTIONS (3)
  - ARRHYTHMIA [None]
  - ELECTROCARDIOGRAM QT PROLONGED [None]
  - OFF LABEL USE [None]
